FAERS Safety Report 17539462 (Version 13)
Quarter: 2021Q2

REPORT INFORMATION
  Report Type: Spontaneous
  Country: US (occurrence: US)
  Receive Date: 20200313
  Receipt Date: 20210622
  Transmission Date: 20210716
  Serious: Yes (Other)
  Sender: FDA-Public Use
  Company Number: US-PFIZER INC-2020109200

PATIENT
  Age: 77 Year
  Sex: Female
  Weight: 60.78 kg

DRUGS (6)
  1. LYRICA [Suspect]
     Active Substance: PREGABALIN
     Dosage: 125 MG, DAILY (2 CAPSULES IN AM AND 3 CAPSULES IN PM, DAILY)
  2. PREDNISONE. [Concomitant]
     Active Substance: PREDNISONE
     Dosage: 3 DF, DAILY (RECENTLY ON 3 PREDNISONE TABLETS A DAY)
  3. LYRICA [Suspect]
     Active Substance: PREGABALIN
     Indication: PAIN
     Dosage: 75 MG, DAILY (25 MG, 1 CAPSULE BY MOUTH IN THE MORNING, 2 BY MOUTH IN THE EVENING)
     Route: 048
  4. LYRICA [Suspect]
     Active Substance: PREGABALIN
     Indication: AUTOIMMUNE DISORDER
     Dosage: UNK (HAD TO TAKE LESS THAN THE 4 TIMES DAILY)
     Route: 048
  5. PREDNISONE. [Concomitant]
     Active Substance: PREDNISONE
     Dosage: 15 MG, DAILY (IN THEBEGINNING SHE WAS ON 15MG A DAY)
  6. PREDNISONE. [Concomitant]
     Active Substance: PREDNISONE
     Dosage: 5 DF, DAILY (TAKING 5 A DAY OF THE PREDNISONE)

REACTIONS (25)
  - Weight decreased [Unknown]
  - Malaise [Unknown]
  - Hunger [Unknown]
  - Lethargy [Unknown]
  - Intentional product misuse [Unknown]
  - Autoimmune disorder [Unknown]
  - Body height decreased [Unknown]
  - Fatigue [Unknown]
  - Anaemia [Unknown]
  - Pain in extremity [Unknown]
  - Cough [Unknown]
  - Joint range of motion decreased [Unknown]
  - Therapeutic product effect incomplete [Unknown]
  - Fall [Unknown]
  - Dizziness [Unknown]
  - Thinking abnormal [Unknown]
  - Condition aggravated [Unknown]
  - Dyspnoea [Not Recovered/Not Resolved]
  - Gait disturbance [Unknown]
  - General physical health deterioration [Unknown]
  - Illness [Unknown]
  - Autophobia [Unknown]
  - Pneumonia [Unknown]
  - Mental disorder [Unknown]
  - Vasculitis [Unknown]

NARRATIVE: CASE EVENT DATE: 202012
